FAERS Safety Report 5711513-4 (Version None)
Quarter: 2008Q2

REPORT INFORMATION
  Report Type: 
  Country: None (occurrence: None)
  Receive Date: 20080419
  Receipt Date: 20080328
  Transmission Date: 20081010
  Serious: Yes (Other)
  Sender: FDA-Public Use
  Company Number: AEUSA200800068

PATIENT
  Age: 77 Year
  Sex: Male
  Weight: 121 kg

DRUGS (18)
  1. IMMUNE GLOBULIN INTRAVENOUS (HUMAN) [Suspect]
     Indication: IDIOPATHIC THROMBOCYTOPENIC PURPURA
     Dosage: 60 GM; 1X; IV
     Route: 042
     Dates: start: 20080326, end: 20080326
  2. GAMMAGARD [Suspect]
     Indication: IDIOPATHIC THROMBOCYTOPENIC PURPURA
     Dosage: 60 GM; 1X
     Dates: start: 20080325, end: 20080327
  3. MAGNESIUM (CON.) [Concomitant]
  4. PROTONIX /01263201/ (CON.) [Concomitant]
  5. FOLIC ACID (CON.) [Concomitant]
  6. INSULIN (CON.) [Concomitant]
  7. ACETAMINOPHEN (CON.) [Concomitant]
  8. ALLOPURINOL (CON.) [Concomitant]
  9. COREG (CON.) [Concomitant]
  10. COMBIVENT (CON.) [Concomitant]
  11. LASIX /00032601/ (CON.) [Concomitant]
  12. SYNTHROID (CON.) [Concomitant]
  13. ERGOCALCIFEROL (CON.) [Concomitant]
  14. RAMIPRIL (CON.) [Concomitant]
  15. ZAROXOLYN (CON.) [Concomitant]
  16. CLONIDINE /00171102/ (CON.) [Concomitant]
  17. BENADRYL /00000402/ (CON.) [Concomitant]
  18. MIDODRINE (CON.) [Concomitant]

REACTIONS (2)
  - CONVULSION [None]
  - TREMOR [None]
